FAERS Safety Report 12262126 (Version 1)
Quarter: 2016Q2

REPORT INFORMATION
  Report Type: Spontaneous
  Country: US (occurrence: US)
  Receive Date: 20160413
  Receipt Date: 20160413
  Transmission Date: 20160815
  Serious: Yes (Death, Life-Threatening, Other)
  Sender: FDA-Public Use
  Company Number: US-GLAXOSMITHKLINE-US2016GSK048976

PATIENT
  Age: 87 Year

DRUGS (2)
  1. CARVEDILOL. [Suspect]
     Active Substance: CARVEDILOL
     Indication: PRODUCT USED FOR UNKNOWN INDICATION
     Dosage: 100 TABLETS OF 3.125 MG
     Route: 048
  2. AMLODIPINE [Suspect]
     Active Substance: AMLODIPINE BESYLATE
     Indication: PRODUCT USED FOR UNKNOWN INDICATION
     Dosage: 100 TABLETS OF 5MG
     Route: 048

REACTIONS (12)
  - Acute respiratory distress syndrome [Not Recovered/Not Resolved]
  - Mental status changes [Not Recovered/Not Resolved]
  - Metabolic acidosis [Unknown]
  - PO2 decreased [Not Recovered/Not Resolved]
  - Hypotension [Unknown]
  - Respiratory failure [Unknown]
  - Heart rate decreased [Unknown]
  - Death [Fatal]
  - Overdose [Unknown]
  - Blood pressure decreased [Not Recovered/Not Resolved]
  - Acute kidney injury [Recovering/Resolving]
  - Blood pH decreased [Unknown]
